FAERS Safety Report 8521554-X (Version None)
Quarter: 2012Q3

REPORT INFORMATION
  Report Type: 
  Country: None (occurrence: None)
  Receive Date: 20120719
  Receipt Date: 20120716
  Transmission Date: 20120928
  Serious: Yes (Death, Other)
  Sender: FDA-Public Use
  Company Number: PHHY2012BR061393

PATIENT
  Sex: Female

DRUGS (6)
  1. ZYPREXA [Suspect]
     Dosage: UNK UKN, UNK
  2. ACETYLSALICYLIC ACID (SOMLAGUN CARDIO) [Concomitant]
     Indication: ANTIPLATELET THERAPY
     Dosage: UNK UKN, UNK
  3. LIPITOR [Concomitant]
     Indication: BLOOD CHOLESTEROL
  4. CONVERSYL PLUS [Concomitant]
     Indication: HYPERTENSION
  5. DIAMICRON [Concomitant]
     Indication: DIABETES MELLITUS
  6. EXELON [Suspect]
     Indication: DEMENTIA ALZHEIMER'S TYPE
     Dosage: 9.5 MG, QD (18MG/10CM2 / 24 HOURS)
     Route: 062
     Dates: start: 20110701

REACTIONS (3)
  - DEATH [None]
  - RENAL FAILURE [None]
  - WRONG TECHNIQUE IN DRUG USAGE PROCESS [None]
